FAERS Safety Report 15171150 (Version 1)
Quarter: 2018Q3

REPORT INFORMATION
  Report Type: Spontaneous
  Country: US (occurrence: US)
  Receive Date: 20180720
  Receipt Date: 20180720
  Transmission Date: 20181010
  Serious: No
  Sender: FDA-Public Use
  Company Number: US-GLAXOSMITHKLINE-US2018124381

PATIENT
  Sex: Male
  Weight: 82 kg

DRUGS (1)
  1. EQUATE NICOTINE [Suspect]
     Active Substance: NICOTINE
     Indication: PRODUCT USED FOR UNKNOWN INDICATION
     Dosage: 14 UNK, UNK
     Dates: start: 20180703, end: 20180707

REACTIONS (1)
  - Application site rash [Unknown]
